FAERS Safety Report 7646621-4 (Version None)
Quarter: 2011Q3

REPORT INFORMATION
  Report Type: 
  Country: None (occurrence: None)
  Receive Date: 20110801
  Receipt Date: 20110329
  Transmission Date: 20111222
  Serious: No
  Sender: FDA-Public Use
  Company Number: JP-UCBSA-028959

PATIENT
  Sex: Female
  Weight: 46.1 kg

DRUGS (8)
  1. KEPPRA [Suspect]
     Indication: EPILEPSY
     Route: 048
  2. TEGRETOL [Suspect]
     Route: 048
  3. FAMOTIDINE [Concomitant]
     Route: 048
  4. ASPIRIN [Concomitant]
     Route: 048
  5. GASMOTIN [Concomitant]
     Route: 048
  6. ACTOS [Concomitant]
  7. CONIEL [Concomitant]
     Route: 048
  8. FRANDOL S [Concomitant]
     Route: 062

REACTIONS (1)
  - NEUROGENIC BLADDER [None]
